FAERS Safety Report 20780292 (Version 1)
Quarter: 2022Q2

REPORT INFORMATION
  Report Type: Report from Study
  Country: GB (occurrence: GB)
  Receive Date: 20220503
  Receipt Date: 20220503
  Transmission Date: 20220721
  Serious: Yes (Hospitalization, Other)
  Sender: FDA-Public Use
  Company Number: GB-CELLTRION INC.-2022GB005546

PATIENT

DRUGS (105)
  1. TRASTUZUMAB [Suspect]
     Active Substance: TRASTUZUMAB
     Indication: Breast cancer
     Dosage: 462 MG EVERY 3 WEEKS (LOADING DOSE; DOSE FORM: 230; ADDITIONAL INFO: 042; CUMULATIVE DOSE: 176 MG)
     Route: 042
     Dates: start: 20150506, end: 20150506
  2. TRASTUZUMAB [Suspect]
     Active Substance: TRASTUZUMAB
     Dosage: 357 MG EVERY 3 WEEKS (DOSE FORM: 230; CUMULATIVE DOSE: 221 MG; ADDITIONAL INFO: ROUTE: 042)
     Dates: start: 20150527, end: 20160630
  3. TRASTUZUMAB [Suspect]
     Active Substance: TRASTUZUMAB
     Dosage: 357 MG (DOSE FORM: 230; ADDITIONAL INFO: ROUTE: 042; CUMULATIVE DOSE: 13056.0 MG)
     Route: 042
     Dates: start: 20170620
  4. ANASTROZOLE [Suspect]
     Active Substance: ANASTROZOLE
     Indication: Breast cancer
     Dosage: 1 MG, QD (DOSE FORM: 245; ADDITIONAL INFO: ROUTE: 048 TABLET)
     Route: 048
     Dates: start: 20151021, end: 20171027
  5. ANASTROZOLE [Suspect]
     Active Substance: ANASTROZOLE
     Indication: Breast neoplasm
     Dosage: 1 MG, QD (DOSE FORM: 245; ADDITIONAL INFO: ROUTE: 048 TABLET)
     Route: 048
  6. CAPECITABINE [Suspect]
     Active Substance: CAPECITABINE
     Indication: Breast cancer
     Dosage: 1650 MG (DOSE FORM: 245; ADDITIONAL INFO: ROUTE: 048)
     Route: 048
     Dates: start: 20150901
  7. CAPECITABINE [Suspect]
     Active Substance: CAPECITABINE
     Dosage: 3300 MG (DOSE FORM: 245; ADDITIONAL INFO: ROUTE: 048)
     Route: 048
     Dates: start: 20160901, end: 20160914
  8. DOCETAXEL [Suspect]
     Active Substance: DOCETAXEL
     Indication: Breast cancer
     Dosage: 130 MG, EVERY 3 WEEKS (ADDITIONAL INFO: ROUTE: 042)
     Route: 042
     Dates: start: 20150507, end: 20150903
  9. EXEMESTANE [Suspect]
     Active Substance: EXEMESTANE
     Indication: Breast cancer
     Dosage: 1 DF, QD (ADDITIONAL INFO: ROUTE: 048)
     Route: 048
     Dates: start: 201607, end: 20160921
  10. EXEMESTANE [Suspect]
     Active Substance: EXEMESTANE
     Dosage: 25 MG (ADDITIONAL INFO: ROUTE: 048)
     Route: 048
     Dates: start: 20090921
  11. EXEMESTANE [Suspect]
     Active Substance: EXEMESTANE
     Dosage: 25 MG (ADDITIONAL INFO: ROUTE: 048)
     Route: 048
  12. EXEMESTANE [Suspect]
     Active Substance: EXEMESTANE
     Dosage: 25 MG (ADDITIONAL INFO: ROUTE: 048; CUMULATIVE DOSE: 1173.9584 MG)
     Route: 048
     Dates: start: 20150328
  13. EXEMESTANE [Suspect]
     Active Substance: EXEMESTANE
     Dosage: 25 MG (ADDITIONAL INFO: ROUTE: 048; CUMULATIVE DOSE: 4000.0 MG)
     Route: 048
     Dates: start: 20151021
  14. EXEMESTANE [Suspect]
     Active Substance: EXEMESTANE
     Dosage: 25 MG (ADDITIONAL INFO: ROUTE: 048; CUMULATIVE DOSE: 51525.0 MG)
     Route: 048
     Dates: start: 20090921
  15. HERCEPTIN [Suspect]
     Active Substance: TRASTUZUMAB
     Indication: Breast cancer
     Dosage: 462 MG (LOADING DOSE 3/WEEK (CV); DOSE FORM: 230
     Route: 042
     Dates: start: 20150506, end: 20150506
  16. HERCEPTIN [Suspect]
     Active Substance: TRASTUZUMAB
     Dosage: 357 MG, EVERY 3 WEEKS (DOSE FORM: 230)
     Dates: start: 20150527, end: 20160630
  17. PERTUZUMAB [Suspect]
     Active Substance: PERTUZUMAB
     Indication: Breast cancer
     Dosage: 420 MG EVERY 3 WEEKS (ADDITIONAL INFO: ROUTE: 042, DOSE FORM: 230, CUMULATIVE DOSE: 260 MG)
     Route: 042
     Dates: start: 20150527, end: 20160630
  18. PERTUZUMAB [Suspect]
     Active Substance: PERTUZUMAB
     Dosage: 2520 MILLIGRAM, WEEKLY, LOADING DOSE (DOSE FORM: 230, ADDITIONAL INFO: ROUTE: 042; CUMULATIVE DOSE:
     Route: 042
     Dates: start: 20150507, end: 20150507
  19. PERTUZUMAB [Suspect]
     Active Substance: PERTUZUMAB
     Dosage: 840 MG (LOADING DOSE; DOSE FORM: 230; CUMULATIVE DOSE: 280 MG; ADDITIONAL INFO: 042)
     Route: 042
     Dates: start: 20150507, end: 20150507
  20. PERTUZUMAB [Suspect]
     Active Substance: PERTUZUMAB
     Dosage: 2520 MG EVERY 3 WEEKS (LOADING DOSE; DOSE FORM: 230; ADDITIONAL INFO: 042)
     Route: 042
     Dates: start: 20150507, end: 20150507
  21. ADO-TRASTUZUMAB EMTANSINE [Suspect]
     Active Substance: ADO-TRASTUZUMAB EMTANSINE
     Indication: Breast cancer
     Dosage: 357 MG (DOSE FORM: 230; CUMULATIVE DOSE: 663 MG; ADDITIONAL INFO: 042)
     Route: 042
     Dates: start: 20150527, end: 20160630
  22. ADO-TRASTUZUMAB EMTANSINE [Suspect]
     Active Substance: ADO-TRASTUZUMAB EMTANSINE
     Dosage: 462 MG, EVERY 1 WEEK (DOSE FORM: 230; ADDITIONAL INFO: ROUTE: 042; CUMULATIVE DOSE: 528 MG)
     Route: 042
     Dates: start: 20150506, end: 20150506
  23. ADO-TRASTUZUMAB EMTANSINE [Suspect]
     Active Substance: ADO-TRASTUZUMAB EMTANSINE
     Dosage: 224 MG EVERY 3 WEEK (DOSE FORM: 230; CUMULATIVE DOSE: 6581.778 MG; ADDITIONAL INFO: 042)
     Route: 042
     Dates: start: 20170120, end: 20170830
  24. TAXOTERE [Suspect]
     Active Substance: DOCETAXEL
     Indication: Breast cancer
     Dosage: 130 MILLIGRAM, UNK, EVERY 3 WEEKS (ADDITIONAL INFO: 042)
     Route: 042
     Dates: start: 20150507, end: 20150903
  25. VINORELBINE [Suspect]
     Active Substance: VINORELBINE TARTRATE
     Indication: Breast cancer
     Dosage: 100 MG, QD (CUMULATIVE DOSE: 54704.168 MG; ADDITIONAL INFO: ROUTE: 048)
     Route: 048
     Dates: start: 20161111
  26. VINORELBINE [Suspect]
     Active Substance: VINORELBINE TARTRATE
     Dosage: 100 MG, QD (CUMULATIVE DOSE: 53300.0 MG; ADDITIONAL INFO: ROUTE: 048)
     Route: 048
     Dates: start: 20161028, end: 20161028
  27. VINORELBINE [Suspect]
     Active Substance: VINORELBINE TARTRATE
     Dosage: 100 MG, QD (CUMULATIVE DOSE: 47600.0 MG; ADDITIONAL INFO: ROUTE: 048)
     Route: 048
     Dates: start: 20160901, end: 20160930
  28. VINORELBINE TARTRATE [Suspect]
     Active Substance: VINORELBINE TARTRATE
     Indication: Breast cancer
     Dosage: 100 MILLIGRAM, UNK, 100 MG, UNK (ADDITIONAL INFO: ROUTE: 048)
     Route: 048
     Dates: start: 20161028, end: 20161028
  29. VINORELBINE TARTRATE [Suspect]
     Active Substance: VINORELBINE TARTRATE
     Dosage: 100 MILLIGRAM, DAILY, 100 MG, QD (1/DAY) (ADDITIONAL INFO: ROUTE: 048)
     Route: 048
     Dates: start: 20161111
  30. VINORELBINE TARTRATE [Suspect]
     Active Substance: VINORELBINE TARTRATE
     Dosage: 100 MILLIGRAM, DAILY, 100 MG, QD (1/DAY) (ADDITIONAL INFO: ROUTE: 048)
     Route: 048
     Dates: start: 20160901, end: 20160930
  31. XELODA [Suspect]
     Active Substance: CAPECITABINE
     Indication: Breast cancer
     Dosage: 3300 MG, UNK (DOSE FORM: 245; ADDITIONAL INFO: ROUTE: 048)
     Route: 048
     Dates: start: 20160901, end: 20160914
  32. CALCIUM CARBONATE\CHOLECALCIFEROL [Concomitant]
     Active Substance: CALCIUM CARBONATE\CHOLECALCIFEROL
     Indication: Product used for unknown indication
     Dosage: DOSE FORM: 245; ADDITIONAL INFO: ROUTE: 048
     Route: 048
     Dates: start: 20171027
  33. AMITRIPTYLINE [Concomitant]
     Active Substance: AMITRIPTYLINE
     Indication: Product used for unknown indication
     Dosage: 10 MILLIGRAM, DAILY
     Route: 048
     Dates: start: 201603
  34. AMOXICILLIN [Concomitant]
     Active Substance: AMOXICILLIN
     Indication: Oropharyngeal pain
     Dosage: 3 DF, TID (3/DAY) (DOSE FORM: 5; CUMULATIVE DOSE: 1566.375 DF; ADDITIONAL INFO: 0048)
     Route: 048
     Dates: start: 20151104, end: 20151111
  35. APREPITANT [Concomitant]
     Active Substance: APREPITANT
     Indication: Prophylaxis
     Dosage: ADDITIONAL INFO: 065
     Route: 065
     Dates: start: 20150527, end: 20150905
  36. BECLOMETHASONE DIPROPIONATE [Concomitant]
     Active Substance: BECLOMETHASONE DIPROPIONATE
     Indication: Wheezing
     Dosage: DOSE FORM: 400; ADDITIONAL INFO: 050
     Route: 050
     Dates: end: 20160108
  37. BISOPROLOL [Concomitant]
     Active Substance: BISOPROLOL
     Indication: Palpitations
     Dosage: ADDITIONAL INFO: ROUTE: 048
     Route: 065
     Dates: start: 20160602, end: 20171027
  38. BISOPROLOL [Concomitant]
     Active Substance: BISOPROLOL
     Dosage: ADDITIONAL INFO: ROUTE: 048
     Route: 048
     Dates: start: 20160602, end: 20171027
  39. CALAMINE [Concomitant]
     Active Substance: CALAMINE\FERRIC OXIDE RED\ZINC OXIDE
     Indication: Product used for unknown indication
     Dosage: UNK UNK, PRN 1 APPLICATION, AS NEEDED ()
     Route: 061
     Dates: start: 20150915
  40. CALCIUM GLUCONATE [Concomitant]
     Active Substance: CALCIUM GLUCONATE
     Indication: Product used for unknown indication
     Dosage: ADDITIONAL INFO:ROUTE: 065
     Route: 065
     Dates: end: 20170201
  41. CASSIA ACUTIFOLIA [Concomitant]
     Indication: Constipation
     Dosage: UNK, UNKNOWN () (DOSE FORM: 245; ADDITIONAL INFO: ROUTE: 048)
     Route: 048
     Dates: start: 20161221, end: 20170327
  42. COCODAMOL [Concomitant]
     Active Substance: ACETAMINOPHEN\CODEINE PHOSPHATE
     Indication: Headache
     Dosage: DOSE FORM: 245; ADDITIONAL INFO: 048
     Route: 048
     Dates: start: 20160929, end: 20171027
  43. CODEINE [Concomitant]
     Active Substance: CODEINE
     Indication: Diarrhoea
     Dosage: DOSE FORM: 245; ADDITIONAL INFO: ROUTE: 048
     Route: 048
  44. CODEINE [Concomitant]
     Active Substance: CODEINE
     Dosage: DOSE FORM: 245; ADDITIONAL INFO: ROUTE: 048
     Route: 048
     Dates: start: 20150603, end: 20150715
  45. CODEINE [Concomitant]
     Active Substance: CODEINE
     Dosage: UNK, UNKNOWN () (ADDITIONAL INFO: 048)
     Route: 048
     Dates: start: 20150603, end: 20150715
  46. CODEINE PHOSPHATE [Concomitant]
     Active Substance: CODEINE PHOSPHATE
     Indication: Product used for unknown indication
     Dosage: 60 MILLIGRAM, QD (QDS AS NEEDED)
     Route: 048
     Dates: start: 20150603
  47. CHLORHEXIDINE GLUCONATE [Concomitant]
     Active Substance: CHLORHEXIDINE GLUCONATE
     Indication: Mucosal inflammation
     Dosage: UNK, PRN 1 MOUTH WASH AS NEEDED ()
     Route: 048
     Dates: start: 20150514, end: 20150715
  48. CYCLIZINE [Concomitant]
     Active Substance: CYCLIZINE
     Indication: Prophylaxis
     Dosage: 50 MILLIGRAM (DOSE FORM: 245; ADDITIONAL INFO: 048; CUMULATIVE DOSE: 6450 MG)
     Route: 048
     Dates: start: 20150603
  49. CYCLIZINE [Concomitant]
     Active Substance: CYCLIZINE
     Dosage: 150 MG, QD (DOSE FORM: 245; ADDITIONAL ROUTE: 048)
     Route: 048
     Dates: start: 20150603, end: 20150715
  50. DEXAMETHASONE [Concomitant]
     Active Substance: DEXAMETHASONE
     Indication: Premedication
     Dosage: 1 DF, QD (1/DAY) (ADDITIONAL INFO: ROOUTE: 065; DOSE FORM: 245;CUMULATIVE DOSE: 509 DF)
     Route: 048
     Dates: start: 20161004, end: 20161123
  51. DEXAMETHASONE [Concomitant]
     Active Substance: DEXAMETHASONE
     Dosage: 1 DF, QD (1/DAY) (ADDITIONAL INFO: ROOUTE: 065; DOSE FORM: 245;CUMULATIVE DOSE: 426.0 {DF})
     Route: 048
     Dates: start: 20160713, end: 201607
  52. DEXAMETHASONE [Concomitant]
     Active Substance: DEXAMETHASONE
     Dosage: 1 DF, QD (1/DAY) (ADDITIONAL INFO: ROUTE: 065; DOSE FORM: 245)
     Route: 048
     Dates: start: 20160713
  53. DEXAMETHASONE [Concomitant]
     Active Substance: DEXAMETHASONE
     Dosage: DOSE FORM: 245, ADDITIONAL INFO ROUTE: 065
     Route: 048
     Dates: start: 20170216, end: 20170830
  54. DEXAMETHASONE [Concomitant]
     Active Substance: DEXAMETHASONE
     Dosage: 2 MG (DOSE FORM: 245, ADDITIONAL INFO ROUTE: 065)
     Route: 048
     Dates: start: 201612, end: 201612
  55. DEXAMETHASONE [Concomitant]
     Active Substance: DEXAMETHASONE
     Dosage: 1 DOSAGE FORM, DAILY, 1 DF, QD (1/DAY)(DOSE FORM: 245, ADDITIONAL INFO ROUTE: 065)
     Route: 048
     Dates: start: 20170216, end: 20170830
  56. DEXAMETHASONE [Concomitant]
     Active Substance: DEXAMETHASONE
     Dosage: 1 DF, QD (1/DAY)(DOSE FORM: 245, ADDITIONAL INFO ROUTE: 065)
     Route: 048
     Dates: start: 201607, end: 20160921
  57. DEXAMETHASONE [Concomitant]
     Active Substance: DEXAMETHASONE
     Dosage: 1 DF, QD (1/DAY)(DOSE FORM: 245, ADDITIONAL INFO ROUTE: 065; CUMULATIVE DOSE: 8 DF)
     Route: 048
     Dates: start: 20150506, end: 20150717
  58. DEXAMETHASONE [Concomitant]
     Active Substance: DEXAMETHASONE
     Dosage: 1 DF, QD (1/DAY)(DOSE FORM: 245, ADDITIONAL INFO ROUTE: 065)
     Route: 048
     Dates: start: 201612, end: 20170510
  59. DEXAMETHASONE [Concomitant]
     Active Substance: DEXAMETHASONE
     Dosage: 1 DF, QD (1/DAY)(DOSE FORM: 245, ADDITIONAL INFO ROUTE: 065; CUMULATIVE DOSE: 559.0417 {DF})
     Route: 048
     Dates: start: 20161123, end: 20161130
  60. DEXAMETHASONE [Concomitant]
     Active Substance: DEXAMETHASONE
     Dosage: DOSE FORM: 245; ADDITIONAL INFO: ROUTE: 065
     Route: 048
     Dates: start: 20160713, end: 201607
  61. DEXAMETHASONE [Concomitant]
     Active Substance: DEXAMETHASONE
     Dosage: 2 MG, UNK (DOSE FORM: 245; ADDITIONAL INFO: ROUTE: 065)
     Route: 048
     Dates: start: 201612, end: 20170510
  62. DEXAMETHASONE [Concomitant]
     Active Substance: DEXAMETHASONE
     Dosage: 8 MG, QD (DOSE FORM: 245; ADDITIONAL INFO: 065; CUMULATIVE DOSE: 4528.3335 MG)
     Route: 048
     Dates: start: 20161130, end: 20161201
  63. DEXAMETHASONE [Concomitant]
     Active Substance: DEXAMETHASONE
     Dosage: 2 MG, UNKNOWN (DOSE FORM: 245; ADDITIONAL INFO: 065; CUMULATIVE DOSE: 4528.3335 MG)
     Route: 048
     Dates: start: 20150504, end: 20150904
  64. FLUCLOXACILLIN [Concomitant]
     Active Substance: FLUCLOXACILLIN
     Indication: Nail infection
     Dosage: 250 MILLIGRAM, TID
     Route: 048
     Dates: start: 20150603, end: 20150610
  65. FLUCLOXACILLIN [Concomitant]
     Active Substance: FLUCLOXACILLIN
     Dosage: 750 MILLIGRAM, QD
     Route: 048
  66. FLUCONAZOLE [Concomitant]
     Active Substance: FLUCONAZOLE
     Indication: Product used for unknown indication
     Dosage: DOSE FORM: 245; ADDITIONAL INFO: ROUTE: 048
     Route: 048
     Dates: start: 20171004, end: 20171004
  67. HYDROCORTISONE [Concomitant]
     Active Substance: HYDROCORTISONE
     Indication: Rash
     Dosage: UNK,LOTION APPLICATION (); DOSE FORM: 17
     Route: 061
  68. IBUPROFEN [Concomitant]
     Active Substance: IBUPROFEN
     Indication: Headache
     Dosage: 1 TABLET (DOSE FORM: 245; ADDITIONAL INFO ROUTE: 048)
     Route: 048
     Dates: start: 20170201
  69. LEVETIRACETAM [Concomitant]
     Active Substance: LEVETIRACETAM
     Indication: Muscle twitching
     Dosage: DOSE FORM: 245; ADDITIONAL INFO ROUTE: 048
     Route: 048
     Dates: start: 20160727, end: 20160810
  70. LEVETIRACETAM [Concomitant]
     Active Substance: LEVETIRACETAM
     Indication: Epilepsy
     Dosage: DOSE FORM: 245; ADDITIONAL INFO ROUTE: 048
     Route: 048
     Dates: start: 20160811, end: 20161027
  71. LEVETIRACETAM [Concomitant]
     Active Substance: LEVETIRACETAM
     Dosage: BID (2/DAY)(DOSE FORM: 245; ADDITIONAL INFO ROUTE: 048)
     Route: 048
     Dates: start: 20160727, end: 20160810
  72. LEVETIRACETAM [Concomitant]
     Active Substance: LEVETIRACETAM
     Dosage: DOSE FORM: 245; ADDITIONAL INFO ROUTE: 048
     Route: 048
     Dates: start: 20160727, end: 20171027
  73. LACTULOSE [Concomitant]
     Active Substance: LACTULOSE
     Indication: Neuralgia
     Dosage: ADDITIONAL INFO ROUTE: 048
     Route: 048
     Dates: start: 20161221, end: 20171021
  74. LACTULOSE [Concomitant]
     Active Substance: LACTULOSE
     Dosage: ADDITIONAL INFO ROUTE: 048
     Route: 048
  75. LACTULOSE [Concomitant]
     Active Substance: LACTULOSE
     Dosage: ADDITIONAL INFO ROUTE: 048
     Route: 048
     Dates: start: 201603, end: 20171021
  76. LANSOPRAZOLE [Concomitant]
     Active Substance: LANSOPRAZOLE
     Indication: Prophylaxis
     Dosage: ADDITIONAL INFO ROUTE: 048
     Route: 048
     Dates: start: 20150504, end: 20171027
  77. LOSARTAN [Concomitant]
     Active Substance: LOSARTAN
     Dosage: 50 MG, UNK (DOSE FORM: 245; ADDITIONAL INFO ROUTE: 048)
     Route: 048
     Dates: start: 20160602, end: 20171027
  78. LOSARTAN [Concomitant]
     Active Substance: LOSARTAN
     Dosage: 50 MG, UNK (DOSE FORM: 245; ADDITIONAL INFO ROUTE: 048)
     Route: 048
  79. METOCLOPRAMIDE [Concomitant]
     Active Substance: METOCLOPRAMIDE
     Indication: Product used for unknown indication
     Dosage: DOSE FORM: 245; ADDITIONAL INFO ROUTE: 048
     Route: 048
     Dates: start: 20170815, end: 2017
  80. METOCLOPRAMIDE [Concomitant]
     Active Substance: METOCLOPRAMIDE
     Dosage: SUBSEQUENT DOSE RECEIVED ON 18/NOV/2016 (DOSE FORM: 245; ADDITIONAL INFO ROUTE:048; CUMULATIVE DOSE:
     Route: 048
     Dates: start: 20170301, end: 2017
  81. METOCLOPRAMIDE [Concomitant]
     Active Substance: METOCLOPRAMIDE
     Dosage: 2 DF, QD (1/DAY)(DOSE FORM: 245; ADDITIONAL INFO ROUTE: 048; CUMULATIVE DOSE: 1648.0 {DF})
     Route: 048
     Dates: start: 20170815, end: 2017
  82. METOCLOPRAMIDE [Concomitant]
     Active Substance: METOCLOPRAMIDE
     Dosage: SUBSEQUENT DOSE RECEIVED ON 18/NOV/2016 ()(DOSE FORM: 245; ADDITIONAL INFO ROUTE: 048)
     Route: 048
     Dates: start: 20150506, end: 2016
  83. METOCLOPRAMIDE [Concomitant]
     Active Substance: METOCLOPRAMIDE
     Dosage: SUBSEQUENT DOSE RECEIVED ON 18/NOV/2016 ()(DOSE FORM: 245; ADDITIONAL INFO ROUTE: 048)
     Route: 048
     Dates: start: 20150506, end: 2016
  84. METOCLOPRAMIDE [Concomitant]
     Active Substance: METOCLOPRAMIDE
     Dosage: ADDITIONAL INFO ROUTE: 048
     Route: 042
     Dates: start: 20150506, end: 20150903
  85. METOCLOPRAMIDE [Concomitant]
     Active Substance: METOCLOPRAMIDE
     Dosage: BID (DOSE FORM: 245; ADDITIONAL INFO ROUTE: 042)
     Route: 042
     Dates: start: 20150506, end: 20150903
  86. METOCLOPRAMIDE [Concomitant]
     Active Substance: METOCLOPRAMIDE
     Dosage: 2 DOSAGE FORM, DAILY, 2 DF, QD (1/DAY). UNTIL 2017(DOSE FORM: 245; ADDITIONAL INFO ROUTE: 042)
     Route: 048
     Dates: start: 20170815
  87. METOCLOPRAMIDE [Concomitant]
     Active Substance: METOCLOPRAMIDE
     Dosage: (DOSE FORM: 245; ADDITIONAL INFO ROUTE: 042)
     Route: 065
  88. METOCLOPRAMIDE [Concomitant]
     Active Substance: METOCLOPRAMIDE
     Dosage: SUBSEQUENT DOSE RECEIVED ON 18/NOV/2016(DOSE FORM: 245; ADDITIONAL INFO ROUTE: 042)
     Route: 048
     Dates: start: 20170301
  89. NITROFURANTOIN [Concomitant]
     Active Substance: NITROFURANTOIN
     Indication: Product used for unknown indication
     Dosage: ADDITIONAL INFO ROUTE: 065
     Route: 065
     Dates: start: 20170621, end: 20170623
  90. ONDANSETRON [Concomitant]
     Active Substance: ONDANSETRON
     Indication: Product used for unknown indication
     Dosage: DOSE FORM: 245; ADDITIONAL INFO ROUTE: 048
     Route: 048
     Dates: start: 20150508, end: 20150904
  91. ONDANSETRON [Concomitant]
     Active Substance: ONDANSETRON
     Dosage: DOSE FORM: 245; ADDITIONAL INFO ROUTE: 048
     Route: 048
     Dates: start: 20161111, end: 2016
  92. ACETAMINOPHEN [Concomitant]
     Active Substance: ACETAMINOPHEN
     Indication: Headache
     Dosage: DOSE FORM: 245; ADDITIONAL INFO ROUTE: 048
     Route: 048
     Dates: start: 20160629, end: 20171027
  93. PEGFILGRASTIM [Concomitant]
     Active Substance: PEGFILGRASTIM
     Indication: Product used for unknown indication
     Dosage: ADDITIONAL INFO ROUTE: 058
     Route: 058
     Dates: start: 20150506, end: 20150903
  94. CHLORPHENIRAMINE MALEATE [Concomitant]
     Active Substance: CHLORPHENIRAMINE MALEATE
     Indication: Rash
     Dosage: 5 MILLIGRAM, PRN
     Route: 048
     Dates: start: 20150725
  95. QUININE SULFATE [Concomitant]
     Active Substance: QUININE SULFATE
     Indication: Muscle spasms
     Dosage: 200 MG, UNK (DOSE FORM: 245; ADDITIONAL INFO ROUTE: 048)
     Route: 048
     Dates: start: 20161123, end: 20171027
  96. RAMIPRIL [Concomitant]
     Active Substance: RAMIPRIL
     Indication: Cough
     Dosage: 435 MILLIGRAM, UNK (DOSE FORM: 245; ADDITIONAL INFO ROUTE: 048;CUMULATIVE DOSE: 435 MG)
     Route: 065
  97. RAMIPRIL [Concomitant]
     Active Substance: RAMIPRIL
     Indication: Palpitations
     Dosage: 5 MILLIGRAM, DAILY, 5 MG, QD (1/DAY) (DOSE FORM: 245; ADDITIONAL INFO ROUTE: 048;CUMULATIVE DOSE: 43
     Route: 048
     Dates: start: 20160308, end: 20160602
  98. RAMIPRIL [Concomitant]
     Active Substance: RAMIPRIL
     Dosage: 5 MG, QD (1/DAY) (DOSE FORM: 245; ADDITIONAL INFO ROUTE: 048;CUMULATIVE DOSE: 1495.2084 MG)
     Route: 048
     Dates: start: 20160308, end: 20160602
  99. SENNA [Concomitant]
     Active Substance: SENNA LEAF\SENNOSIDES\SENNOSIDES A AND B
     Indication: Constipation
     Dosage: DOSE FORM: 245; ADDITIONAL INFO ROUTE: 048
     Route: 048
     Dates: start: 20161221, end: 20170327
  100. SPIRONOLACTONE [Concomitant]
     Active Substance: SPIRONOLACTONE
     Indication: Palpitations
     Dosage: DOSE FORM: 245; ADDITIONAL INFO ROUTE: 048
     Route: 048
     Dates: start: 20160602, end: 20171027
  101. TRIMETHOPRIM [Concomitant]
     Active Substance: TRIMETHOPRIM
     Indication: Urinary tract infection
     Dosage: DOSE FORM: 245; ADDITIONAL INFO ROUTE: 048
     Route: 048
     Dates: start: 20170209, end: 20170216
  102. VENTOLIN [Concomitant]
     Active Substance: ALBUTEROL SULFATE
     Indication: Wheezing
     Dosage: ADDITIONAL INFO ROUTE: 065
     Route: 065
     Dates: start: 20170621, end: 2017
  103. AROMASIN [Concomitant]
     Active Substance: EXEMESTANE
  104. ARIMIDEX [Concomitant]
     Active Substance: ANASTROZOLE
  105. GELCLAIR [HYALURONATE SODIUM;POVIDONE] [Concomitant]
     Dosage: QD (1/DAY)
     Route: 048
     Dates: start: 20150514, end: 20150514

REACTIONS (33)
  - Vaginal discharge [Recovered/Resolved]
  - Poor peripheral circulation [Unknown]
  - Oropharyngeal pain [Recovered/Resolved]
  - Neuralgia [Not Recovered/Not Resolved]
  - Muscle twitching [Unknown]
  - Hiccups [Not Recovered/Not Resolved]
  - Depressed mood [Not Recovered/Not Resolved]
  - Nail infection [Recovered/Resolved]
  - Seizure [Unknown]
  - Headache [Recovered/Resolved]
  - Headache [Recovered/Resolved]
  - Left ventricular dysfunction [Not Recovered/Not Resolved]
  - Muscle spasms [Unknown]
  - Abdominal pain [Unknown]
  - Nausea [Recovered/Resolved]
  - Nausea [Recovered/Resolved]
  - Rash [Recovered/Resolved]
  - Mucosal inflammation [Unknown]
  - Chest pain [Recovered/Resolved]
  - Alopecia [Unknown]
  - Weight decreased [Unknown]
  - Dizziness [Unknown]
  - Nasopharyngitis [Recovered/Resolved]
  - Urinary tract infection [Recovered/Resolved]
  - Nail disorder [Recovered/Resolved]
  - Constipation [Recovered/Resolved]
  - Palpitations [Not Recovered/Not Resolved]
  - Neuropathy peripheral [Not Recovered/Not Resolved]
  - Neuropathy peripheral [Not Recovered/Not Resolved]
  - Diarrhoea [Recovered/Resolved]
  - Fatigue [Not Recovered/Not Resolved]
  - Cough [Recovered/Resolved]
  - Lacrimation increased [Not Recovered/Not Resolved]

NARRATIVE: CASE EVENT DATE: 20150508
